FAERS Safety Report 20401461 (Version 2)
Quarter: 2022Q1

REPORT INFORMATION
  Report Type: Spontaneous
  Country: US (occurrence: US)
  Receive Date: 20220131
  Receipt Date: 20220201
  Transmission Date: 20220423
  Serious: No
  Sender: FDA-Public Use
  Company Number: US-ABBVIE-21K-163-4058480-00

PATIENT
  Sex: Female
  Weight: 102.15 kg

DRUGS (1)
  1. HUMIRA [Suspect]
     Active Substance: ADALIMUMAB
     Indication: Product used for unknown indication
     Route: 058

REACTIONS (7)
  - Visual impairment [Unknown]
  - Palpitations [Unknown]
  - Chest discomfort [Unknown]
  - Initial insomnia [Unknown]
  - Dyspnoea [Unknown]
  - Eye pain [Unknown]
  - Migraine [Unknown]
